FAERS Safety Report 8257668-1 (Version None)
Quarter: 2012Q2

REPORT INFORMATION
  Report Type: 
  Country: None (occurrence: None)
  Receive Date: 20120403
  Receipt Date: 20120321
  Transmission Date: 20120825
  Serious: Yes (Hospitalization, Other)
  Sender: FDA-Public Use
  Company Number: US-RB-036840-12

PATIENT
  Age: 25 Year
  Sex: Male

DRUGS (9)
  1. KLONOPIN [Concomitant]
     Indication: ANXIETY DISORDER
     Dosage: UNKNOWN DOSE
     Route: 065
  2. SEROQUEL [Concomitant]
     Indication: DEPRESSION
     Dosage: UNKNOWN DOSE
     Route: 065
  3. SEROQUEL [Concomitant]
     Indication: BIPOLAR DISORDER
     Dosage: UNKNOWN DOSE
     Route: 065
  4. LAMICTAL [Concomitant]
     Indication: BIPOLAR DISORDER
     Dosage: UNKNOWN DOSE
     Route: 065
  5. RITALIN [Concomitant]
     Indication: ATTENTION DEFICIT/HYPERACTIVITY DISORDER
     Dosage: UNKNOWN DOSE
     Route: 065
  6. LATUDA [Concomitant]
     Indication: BIPOLAR DISORDER
     Route: 065
  7. SUBOXONE [Suspect]
     Indication: DRUG DEPENDENCE
     Route: 060
     Dates: start: 20111001, end: 20120101
  8. PRILOSEC [Concomitant]
     Indication: GASTROOESOPHAGEAL REFLUX DISEASE
     Dosage: UNKNOWN DOSE
     Route: 065
  9. ROZAREM [Concomitant]
     Indication: SLEEP DISORDER
     Dosage: UNKNOWN DOSE
     Route: 065

REACTIONS (5)
  - SUICIDAL IDEATION [None]
  - DRUG WITHDRAWAL SYNDROME [None]
  - MALAISE [None]
  - CONDITION AGGRAVATED [None]
  - DEPRESSION [None]
